FAERS Safety Report 13190618 (Version 2)
Quarter: 2017Q1

REPORT INFORMATION
  Report Type: Report from Study
  Country: None (occurrence: CA)
  Receive Date: 20170206
  Receipt Date: 20170214
  Transmission Date: 20170428
  Serious: Yes (Other)
  Sender: FDA-Public Use
  Company Number: CA-ABBVIE-17P-028-1861958-00

PATIENT
  Sex: Male
  Weight: 114.86 kg

DRUGS (5)
  1. VITAMIN E [Concomitant]
     Active Substance: .ALPHA.-TOCOPHEROL
     Indication: PRODUCT USED FOR UNKNOWN INDICATION
     Route: 065
  2. TAMSULOSIN [Concomitant]
     Active Substance: TAMSULOSIN
     Indication: PRODUCT USED FOR UNKNOWN INDICATION
     Route: 065
  3. LUPRON DEPOT [Suspect]
     Active Substance: LEUPROLIDE ACETATE
     Indication: PROSTATE CANCER
     Route: 030
     Dates: start: 20151027
  4. METFORMIN [Concomitant]
     Active Substance: METFORMIN HYDROCHLORIDE
     Indication: PRODUCT USED FOR UNKNOWN INDICATION
     Route: 065
  5. CORTISONE [Concomitant]
     Active Substance: CORTISONE\HYDROCORTISONE
     Indication: PRODUCT USED FOR UNKNOWN INDICATION
     Dosage: EYE DROPS
     Route: 047
     Dates: start: 20170117

REACTIONS (6)
  - Fatigue [Not Recovered/Not Resolved]
  - Psoriasis [Not Recovered/Not Resolved]
  - Intraocular pressure increased [Recovered/Resolved]
  - Dyspnoea [Not Recovered/Not Resolved]
  - Chest pain [Not Recovered/Not Resolved]
  - Fall [Unknown]
